FAERS Safety Report 7440383-1 (Version None)
Quarter: 2011Q2

REPORT INFORMATION
  Report Type: 
  Country: None (occurrence: None)
  Receive Date: 20110427
  Receipt Date: 20110422
  Transmission Date: 20111010
  Serious: Yes (Other)
  Sender: FDA-Public Use
  Company Number: US-PFIZER INC-2011056597

PATIENT
  Sex: Female
  Weight: 69.388 kg

DRUGS (9)
  1. IMITREX [Concomitant]
  2. LORTAB [Concomitant]
     Dosage: 5/500
  3. LYRICA [Suspect]
     Indication: RADICULAR PAIN
  4. LYRICA [Suspect]
     Indication: FIBROMYALGIA
     Dosage: 50 MG, AT BEDTIME
     Route: 048
     Dates: start: 20070402, end: 20070625
  5. EFFEXOR XR [Concomitant]
     Indication: DEPRESSION
     Dosage: 100 MG, 1X/DAY
     Route: 048
  6. AMBIEN [Concomitant]
  7. VALIUM [Concomitant]
  8. CORTISONE [Concomitant]
     Dosage: UNK
  9. SEROQUEL [Concomitant]
     Indication: INSOMNIA
     Dosage: UNK

REACTIONS (3)
  - VISION BLURRED [None]
  - FEELING DRUNK [None]
  - DRUG INEFFECTIVE [None]
